FAERS Safety Report 4300271-6 (Version None)
Quarter: 2004Q1

REPORT INFORMATION
  Report Type: 
  Country: None (occurrence: None)
  Receive Date: 20040220
  Receipt Date: 20031112
  Transmission Date: 20041129
  Serious: Yes (Hospitalization)
  Sender: FDA-Public Use
  Company Number: WAES 0312USA00166

PATIENT
  Age: 48 Year
  Sex: Male
  Weight: 111 kg

DRUGS (5)
  1. ASPIRIN [Concomitant]
     Indication: MYOCARDIAL INFARCTION
     Route: 048
     Dates: start: 20011201
  2. ZETIA [Suspect]
     Indication: HYPERLIPIDAEMIA
     Route: 048
     Dates: start: 20021122, end: 20031003
  3. MOTRIN [Concomitant]
     Route: 048
     Dates: start: 20011201
  4. PRINIVIL [Concomitant]
     Indication: MYOCARDIAL INFARCTION
     Route: 048
     Dates: start: 20011201
  5. VIAGRA [Concomitant]
     Route: 048
     Dates: start: 20021001

REACTIONS (1)
  - RHABDOMYOLYSIS [None]
